FAERS Safety Report 19243011 (Version 1)
Quarter: 2021Q2

REPORT INFORMATION
  Report Type: Spontaneous
  Country: JP (occurrence: JP)
  Receive Date: 20210511
  Receipt Date: 20210511
  Transmission Date: 20210717
  Serious: Yes (Hospitalization, Other)
  Sender: FDA-Public Use
  Company Number: JP-HQ SPECIALTY-JP-2021INT000065

PATIENT
  Age: 59 Year
  Sex: Female

DRUGS (3)
  1. CISPLATIN. [Suspect]
     Active Substance: CISPLATIN
     Indication: SMALL CELL LUNG CANCER EXTENSIVE STAGE
     Dosage: 80 MG/M2, QD, ON DAY 1 EVERY 3 WEEKS FOR 4 CYCLES
     Route: 065
  2. ETOPOSIDE. [Suspect]
     Active Substance: ETOPOSIDE
     Indication: SMALL CELL LUNG CANCER EXTENSIVE STAGE
     Dosage: 100 MG/M2, QD, ON DAYS 1?3 EVERY 3 WEEKS FOR 3 CYCLES
     Route: 065
  3. RADIOTHERAPY [Suspect]
     Active Substance: RADIATION THERAPY
     Indication: SMALL CELL LUNG CANCER EXTENSIVE STAGE
     Dosage: 60 GY
     Route: 065

REACTIONS (3)
  - Pancytopenia [Unknown]
  - Aortic thrombosis [Unknown]
  - Embolic stroke [Not Recovered/Not Resolved]
